FAERS Safety Report 21682554 (Version 1)
Quarter: 2022Q4

REPORT INFORMATION
  Report Type: Spontaneous
  Country: CN (occurrence: CN)
  Receive Date: 20221205
  Receipt Date: 20221205
  Transmission Date: 20230112
  Serious: Yes (Hospitalization)
  Sender: FDA-Public Use
  Company Number: CN-PFIZER INC-PV202200115923

PATIENT
  Age: 10 Year
  Sex: Female
  Weight: 29.7 kg

DRUGS (7)
  1. CYTARABINE [Suspect]
     Active Substance: CYTARABINE
     Indication: Chemotherapy
     Dosage: 2.2 G, 2X/DAY
     Route: 041
     Dates: start: 20221111, end: 20221112
  2. ETOPOSIDE [Suspect]
     Active Substance: ETOPOSIDE
     Indication: Chemotherapy
     Dosage: 0.11 G, 2X/DAY
     Route: 041
     Dates: start: 20221113, end: 20221115
  3. METHOTREXATE [Suspect]
     Active Substance: METHOTREXATE
     Indication: Chemotherapy
     Dosage: 0.012 G, 1X/DAY
     Route: 041
     Dates: start: 20221111, end: 20221111
  4. DEXAMETHASONE SODIUM PHOSPHATE [Concomitant]
     Active Substance: DEXAMETHASONE SODIUM PHOSPHATE
     Indication: Antiallergic therapy
     Dosage: 11 MG, 12X/DAY
     Route: 041
     Dates: start: 20221111, end: 20221115
  5. DOMPERIDONE [Concomitant]
     Active Substance: DOMPERIDONE
     Indication: Prophylaxis of nausea and vomiting
     Dosage: 10 MG, 1X/DAY
     Route: 041
     Dates: start: 20221113, end: 20221122
  6. ONDANSETRON HYDROCHLORIDE [Concomitant]
     Active Substance: ONDANSETRON HYDROCHLORIDE
     Indication: Prophylaxis of nausea and vomiting
     Dosage: 4 MG, 2X/DAY
     Route: 041
     Dates: start: 20221110, end: 20221117
  7. CIMETIDINE [Concomitant]
     Active Substance: CIMETIDINE
     Indication: Prophylaxis of nausea and vomiting
     Dosage: 2 ML, 1X/DAY
     Route: 041
     Dates: start: 20221110, end: 20221116

REACTIONS (1)
  - Granulocyte count decreased [Recovering/Resolving]

NARRATIVE: CASE EVENT DATE: 20221122
